FAERS Safety Report 4704326-3 (Version None)
Quarter: 2005Q2

REPORT INFORMATION
  Report Type: 
  Country: None (occurrence: None)
  Receive Date: 20050628
  Receipt Date: 20050427
  Transmission Date: 20051028
  Serious: Yes (Death, Hospitalization, Disabling)
  Sender: FDA-Public Use
  Company Number: 2005048285

PATIENT
  Age: 73 Year
  Sex: Male

DRUGS (3)
  1. IRINOTECAN HCL [Suspect]
     Indication: RECTAL CANCER
     Dosage: 100 MG INTRAVENOUS
     Route: 042
     Dates: start: 20050202, end: 20050202
  2. FLUOROURACIL [Concomitant]
  3. CALCIUM FOLINATE [Concomitant]

REACTIONS (11)
  - ALPHA HAEMOLYTIC STREPTOCOCCAL INFECTION [None]
  - ANOREXIA [None]
  - BLOOD PRESSURE DECREASED [None]
  - CONDITION AGGRAVATED [None]
  - DISSEMINATED INTRAVASCULAR COAGULATION [None]
  - ESCHERICHIA INFECTION [None]
  - MALAISE [None]
  - PANCYTOPENIA [None]
  - SEPSIS [None]
  - STAPHYLOCOCCAL INFECTION [None]
  - THERAPY NON-RESPONDER [None]
